FAERS Safety Report 5636072-6 (Version None)
Quarter: 2008Q1

REPORT INFORMATION
  Report Type: 
  Country: None (occurrence: None)
  Receive Date: 20080220
  Receipt Date: 20080220
  Transmission Date: 20080703
  Serious: Yes (Other)
  Sender: FDA-Public Use
  Company Number: None

PATIENT
  Sex: Female
  Weight: 64.4108 kg

DRUGS (4)
  1. VIVITROL [Suspect]
     Indication: ALCOHOLISM
     Dosage: UNKNOWN UNKNOWN IM
     Route: 030
     Dates: start: 20071101
  2. LEXAPRO [Concomitant]
  3. VISTARIL [Concomitant]
  4. MULTI-VITAMIN [Concomitant]

REACTIONS (3)
  - INJECTION SITE MASS [None]
  - INJECTION SITE SCAR [None]
  - NO THERAPEUTIC RESPONSE [None]
